FAERS Safety Report 15594053 (Version 1)
Quarter: 2018Q4

REPORT INFORMATION
  Report Type: Spontaneous
  Country: DK (occurrence: DK)
  Receive Date: 20181107
  Receipt Date: 20181107
  Transmission Date: 20190205
  Serious: Yes (Other)
  Sender: FDA-Public Use
  Company Number: DK-BAYER-2017-236711

PATIENT
  Age: 28 Year
  Sex: Female

DRUGS (4)
  1. QLAIRA [Suspect]
     Active Substance: DIENOGEST\ESTRADIOL VALERATE
     Indication: ORAL CONTRACEPTION
     Dosage: 1 DF, QD
     Route: 048
     Dates: start: 20130611, end: 20160706
  2. QLAIRA [Suspect]
     Active Substance: DIENOGEST\ESTRADIOL VALERATE
     Indication: ORAL CONTRACEPTION
     Dosage: 1 DF, UNK
     Route: 048
     Dates: start: 20130611, end: 20160706
  3. ELTROXIN [Concomitant]
     Active Substance: LEVOTHYROXINE
     Indication: HYPOTHYROIDISM
     Route: 048
  4. ELTROXIN [Concomitant]
     Active Substance: LEVOTHYROXINE
     Indication: HYPOTHYROIDISM
     Dosage: 100MCG 6 DAYS AND 150MCG 1 DAY, RESPECTIVELY
     Route: 048

REACTIONS (7)
  - Retinal vein thrombosis [Recovered/Resolved with Sequelae]
  - Vision blurred [Recovered/Resolved]
  - Condition aggravated [Recovered/Resolved]
  - Retinal vein occlusion [Recovered/Resolved]
  - Vision blurred [Recovered/Resolved]
  - Eye oedema [Recovered/Resolved]
  - Asthenopia [Not Recovered/Not Resolved]

NARRATIVE: CASE EVENT DATE: 2016
